FAERS Safety Report 18514423 (Version 2)
Quarter: 2021Q4

REPORT INFORMATION
  Report Type: Spontaneous
  Country: IT (occurrence: IT)
  Receive Date: 20201118
  Receipt Date: 20211008
  Transmission Date: 20220304
  Serious: Yes (Other)
  Sender: FDA-Public Use
  Company Number: IT-MINISAL02-641658

PATIENT
  Age: 74 Year
  Sex: Male

DRUGS (1)
  1. OXALIPLATIN [Suspect]
     Active Substance: OXALIPLATIN
     Indication: Colon cancer
     Dosage: 124.4 MILLIGRAM, CYCLICAL
     Route: 042
     Dates: start: 20201012, end: 20201028

REACTIONS (1)
  - Dyspnoea [Recovered/Resolved]

NARRATIVE: CASE EVENT DATE: 20201028
